FAERS Safety Report 5835282-2 (Version None)
Quarter: 2008Q3

REPORT INFORMATION
  Report Type: 
  Country: None (occurrence: None)
  Receive Date: 20080731
  Receipt Date: 20080721
  Transmission Date: 20090109
  Serious: Yes (Hospitalization)
  Sender: FDA-Public Use
  Company Number: WAES 99055503

PATIENT
  Age: 58 Year
  Sex: Male

DRUGS (3)
  1. PROPECIA [Suspect]
     Indication: ALOPECIA
     Dosage: 1 MG/DAILY, PO, 0.5 MG/DAILY,PO, 0.25 MG/DAILY, 1 MG/DAILY PO
     Route: 048
     Dates: start: 19990107, end: 19990201
  2. PROPECIA [Suspect]
     Indication: ALOPECIA
     Dosage: 1 MG/DAILY, PO, 0.5 MG/DAILY,PO, 0.25 MG/DAILY, 1 MG/DAILY PO
     Route: 048
     Dates: start: 19990301, end: 19990401
  3. PROPECIA [Suspect]
     Indication: ALOPECIA
     Dosage: 1 MG/DAILY, PO, 0.5 MG/DAILY,PO, 0.25 MG/DAILY, 1 MG/DAILY PO
     Route: 048
     Dates: start: 19990401

REACTIONS (8)
  - ARTHRALGIA [None]
  - ARTHROPATHY [None]
  - FACE OEDEMA [None]
  - LIBIDO DECREASED [None]
  - LIP ULCERATION [None]
  - MENINGIOMA [None]
  - SPINAL DISORDER [None]
  - WRONG TECHNIQUE IN DRUG USAGE PROCESS [None]
